FAERS Safety Report 7330810-2 (Version None)
Quarter: 2011Q1

REPORT INFORMATION
  Report Type: 
  Country: None (occurrence: None)
  Receive Date: 20110304
  Receipt Date: 20110228
  Transmission Date: 20110831
  Serious: No
  Sender: FDA-Public Use
  Company Number: US-PFIZER INC-2011006298

PATIENT
  Sex: Female
  Weight: 49.887 kg

DRUGS (30)
  1. TRAVOPROST [Concomitant]
     Indication: GLAUCOMA
     Dosage: UNK, AT BEDTIME
  2. AMITRIPTYLINE HYDROCHLORIDE [Concomitant]
     Dosage: 25 MG, 1X/DAY AT BEDTIME
  3. LIPITOR [Concomitant]
     Dosage: 20 MG, 1X/DAY
  4. VALIUM [Concomitant]
     Dosage: 10 MG, 3X/DAY
  5. DILAUDID [Concomitant]
     Dosage: 8 MG, EVERY 4 HRS
  6. VOLTAREN [Concomitant]
     Dosage: 4 G, 4X/DAY
  7. TRAMADOL HYDROCHLORIDE [Concomitant]
     Dosage: 100MG, EVERY 6 HOURS
  8. MSIR [Concomitant]
     Dosage: 30 MG, EVERY THREE HOURS
  9. ZOCOR [Concomitant]
     Dosage: 20 MG, 1X/DAY
  10. LYRICA [Suspect]
     Indication: PAIN
     Dosage: 75 MG, DAILY AT BEDTIME
     Route: 048
     Dates: start: 20110107
  11. ULTRAM ER [Concomitant]
     Dosage: 200 MG, 1X/DAY
  12. SOMA [Concomitant]
     Dosage: 350 MG, 4X/DAY
  13. ROXICODONE [Concomitant]
     Dosage: 30 MG, EVERY 4 HRS
  14. ZOCOR [Concomitant]
     Dosage: 10 MG, UNK
  15. LYRICA [Suspect]
     Indication: NEURALGIA
  16. TAPENTADOL [Concomitant]
     Dosage: 100 MG, EVERY 4 HRS
  17. LIDODERM [Concomitant]
     Dosage: 5 %, DAILY
  18. HYDROXYZINE HYDROCHLORIDE [Concomitant]
     Dosage: 25 MG, EVERY 4 HRS
  19. FLECTOR [Concomitant]
     Dosage: 1.3 %, 1 PATCH 2X/DAY
  20. LYRICA [Suspect]
     Indication: OSTEOPOROSIS
     Dosage: 50 MG, 1X/DAY AT BEDTIME
     Route: 048
     Dates: start: 20110105
  21. WARFARIN [Concomitant]
     Indication: ATRIAL FIBRILLATION
     Dosage: 2.5 MG, 1X/DAY
  22. TEMAZEPAM [Concomitant]
     Dosage: 30 MG, 1X/DAY AT BEDTIME
  23. CELEBREX [Concomitant]
     Indication: RHEUMATOID ARTHRITIS
     Dosage: 200 MG, 2X/DAY
  24. COLACE [Concomitant]
     Dosage: 100 MG, 2X/DAY
  25. DILTIAZEM HYDROCHLORIDE [Concomitant]
     Dosage: 120 MG, 1X/DAY
  26. LYRICA [Suspect]
     Indication: PAIN IN EXTREMITY
  27. ARMODAFINIL [Concomitant]
     Dosage: 150 MG, 1X/DAY
  28. MS CONTIN [Concomitant]
     Dosage: 60 MG, 3X/DAY
  29. LISINOPRIL [Concomitant]
     Dosage: 5 MG, 1X/DAY
  30. FLECAINIDE [Concomitant]
     Dosage: 50 MG, 2X/DAY

REACTIONS (2)
  - BLOOD BLISTER [None]
  - GLOSSODYNIA [None]
